FAERS Safety Report 14694175 (Version 2)
Quarter: 2018Q2

REPORT INFORMATION
  Report Type: Spontaneous
  Country: FR (occurrence: FR)
  Receive Date: 20180329
  Receipt Date: 20180612
  Transmission Date: 20180711
  Serious: Yes (Hospitalization, Disabling, Congenital Anomaly, Other)
  Sender: FDA-Public Use
  Company Number: FR-ABBVIE-18S-056-2300557-00

PATIENT
  Sex: Female

DRUGS (6)
  1. ALEPSAL [Concomitant]
     Active Substance: ATROPA BELLADONNA\CAFFEINE\PHENOBARBITAL
     Indication: PRODUCT USED FOR UNKNOWN INDICATION
  2. DEPAKINE CHRONO [Suspect]
     Active Substance: VALPROATE SODIUM
     Indication: MATERNAL EXPOSURE TIMING UNSPECIFIED
     Route: 064
  3. FLUDEX [Concomitant]
     Indication: PRODUCT USED FOR UNKNOWN INDICATION
  4. INEGY [Concomitant]
     Active Substance: EZETIMIBE\SIMVASTATIN
     Indication: PRODUCT USED FOR UNKNOWN INDICATION
  5. MEDIATOR [Concomitant]
     Active Substance: BENFLUOREX
     Indication: PRODUCT USED FOR UNKNOWN INDICATION
  6. PHENOBARBITAL. [Concomitant]
     Active Substance: PHENOBARBITAL
     Indication: PRODUCT USED FOR UNKNOWN INDICATION

REACTIONS (18)
  - Psychomotor hyperactivity [Recovered/Resolved]
  - Failure to thrive [Unknown]
  - Fall [Unknown]
  - Foetal exposure during pregnancy [Unknown]
  - General physical health deterioration [Recovered/Resolved]
  - Pyramidal tract syndrome [Unknown]
  - Jaundice [Recovered/Resolved]
  - Vomiting [Recovered/Resolved]
  - Hyperthermia [Recovered/Resolved]
  - Disorientation [Unknown]
  - Ear infection [Unknown]
  - Hypocalcaemia [Recovered/Resolved]
  - Amnesia [Unknown]
  - Delirium [Recovered/Resolved]
  - Congenital scoliosis [Not Recovered/Not Resolved]
  - Psychomotor retardation [Unknown]
  - Strabismus congenital [Not Recovered/Not Resolved]
  - Meningitis pneumococcal [Recovered/Resolved]

NARRATIVE: CASE EVENT DATE: 199304
